FAERS Safety Report 4472805-2 (Version None)
Quarter: 2004Q4

REPORT INFORMATION
  Report Type: 
  Country: None (occurrence: None)
  Receive Date: 20041013
  Receipt Date: 20040728
  Transmission Date: 20050328
  Serious: Yes (Death, Other)
  Sender: FDA-Public Use
  Company Number: 200417453GDDC

PATIENT
  Sex: Female

DRUGS (2)
  1. RIFAMPIN AND ISONIAZID [Suspect]
     Indication: TUBERCULOSIS
     Route: 048
     Dates: start: 19940301, end: 19950301
  2. PYRAZINAMIDE [Concomitant]
     Indication: TUBERCULOSIS
     Route: 048
     Dates: start: 19940301, end: 19940701

REACTIONS (2)
  - DEATH [None]
  - SYSTEMIC LUPUS ERYTHEMATOSUS [None]
